FAERS Safety Report 8597896-9 (Version None)
Quarter: 2012Q3

REPORT INFORMATION
  Report Type: 
  Country: None (occurrence: None)
  Receive Date: 20120816
  Receipt Date: 20120712
  Transmission Date: 20120928
  Serious: Yes (Disabling)
  Sender: FDA-Public Use
  Company Number: US-BAYER-2012-083483

PATIENT
  Age: 78 Year
  Sex: Female

DRUGS (10)
  1. VITAMIN B COMPLEX CAP [Concomitant]
  2. DABIGATRAN [Concomitant]
  3. RYTHMOL [Concomitant]
  4. MULTI-VITAMIN [Concomitant]
  5. TRAVATAN [Concomitant]
  6. DIGOXIN [Concomitant]
  7. LIPITOR [Concomitant]
  8. ATIVAN [Concomitant]
  9. AVELOX [Suspect]
     Indication: PNEUMONIA
     Dosage: 1 TABLET ONCE DAILY FOR 10 DAYS
     Route: 048
     Dates: start: 20111014
  10. DIOVAN HCT [Concomitant]

REACTIONS (7)
  - PAIN [None]
  - PARAESTHESIA [None]
  - ASTHENIA [None]
  - BALANCE DISORDER [None]
  - HYPERAESTHESIA [None]
  - NEUROPATHY PERIPHERAL [None]
  - GAIT DISTURBANCE [None]
